FAERS Safety Report 20697272 (Version 1)
Quarter: 2022Q2

REPORT INFORMATION
  Report Type: Spontaneous
  Country: US (occurrence: US)
  Receive Date: 20220411
  Receipt Date: 20220411
  Transmission Date: 20220721
  Serious: Yes (Other)
  Sender: FDA-Public Use
  Company Number: US-PFIZER INC-202200507518

PATIENT
  Age: 61 Year
  Sex: Female
  Weight: 77.098 kg

DRUGS (2)
  1. PREMARIN [Suspect]
     Active Substance: ESTROGENS, CONJUGATED
     Indication: Hysterectomy
     Dosage: 1.625 MG, 1X/DAY
  2. INFLUENZA VIRUS VACCINE [Suspect]
     Active Substance: INFLUENZA VIRUS VACCINE
     Indication: Immunisation
     Dosage: DOSE NUMER UNKNOWN, SINGLE

REACTIONS (3)
  - Cardiac arrest [Unknown]
  - Drug hypersensitivity [Unknown]
  - Off label use [Unknown]
